FAERS Safety Report 12420527 (Version 1)
Quarter: 2016Q2

REPORT INFORMATION
  Report Type: Report from Study
  Country: CA (occurrence: CA)
  Receive Date: 20160531
  Receipt Date: 20160531
  Transmission Date: 20160815
  Serious: Yes (Other)
  Sender: FDA-Public Use
  Company Number: CA-JNJFOC-20160525690

PATIENT
  Sex: Female
  Weight: 56.02 kg

DRUGS (1)
  1. SIMPONI [Suspect]
     Active Substance: GOLIMUMAB
     Indication: COLITIS ULCERATIVE
     Route: 058
     Dates: start: 20140416

REACTIONS (3)
  - Sinusitis [Unknown]
  - Clostridium difficile infection [Unknown]
  - Diarrhoea [Unknown]
